FAERS Safety Report 5473398-3 (Version None)
Quarter: 2007Q3

REPORT INFORMATION
  Report Type: 
  Country: None (occurrence: None)
  Receive Date: 20070824
  Receipt Date: 20070601
  Transmission Date: 20080115
  Serious: Yes (Other)
  Sender: FDA-Public Use
  Company Number: WAES 0706USA00359

PATIENT
  Age: 51 Year
  Sex: Male

DRUGS (2)
  1. VYTORIN [Suspect]
     Dosage: 10-10 MG/DAILY/PO
     Route: 048
     Dates: start: 20070101, end: 20070501
  2. PLAVIX [Concomitant]

REACTIONS (1)
  - STEVENS-JOHNSON SYNDROME [None]
